FAERS Safety Report 10369353 (Version 1)
Quarter: 2014Q3

REPORT INFORMATION
  Report Type: Spontaneous
  Country: US (occurrence: US)
  Receive Date: 20140807
  Receipt Date: 20140807
  Transmission Date: 20150326
  Serious: No
  Sender: FDA-Public Use
  Company Number: US-ABBVIE-14P-163-1225249-00

PATIENT
  Sex: Female
  Weight: 79.45 kg

DRUGS (3)
  1. DEPAKOTE ER [Suspect]
     Active Substance: DIVALPROEX SODIUM
     Indication: BIPOLAR DISORDER
  2. LORAZEPAM. [Concomitant]
     Active Substance: LORAZEPAM
     Indication: ANXIETY
  3. ZONISAMIDE. [Concomitant]
     Active Substance: ZONISAMIDE
     Indication: OVERWEIGHT

REACTIONS (1)
  - Weight increased [Recovering/Resolving]
